FAERS Safety Report 12652698 (Version 2)
Quarter: 2016Q3

REPORT INFORMATION
  Report Type: Spontaneous
  Country: JP (occurrence: JP)
  Receive Date: 20160815
  Receipt Date: 20160909
  Transmission Date: 20161109
  Serious: Yes (Hospitalization, Other)
  Sender: FDA-Public Use
  Company Number: JP-PFIZER INC-2016370596

PATIENT
  Age: 36 Year
  Sex: Male
  Weight: 65 kg

DRUGS (15)
  1. REBAMIPIDE [Concomitant]
     Active Substance: REBAMIPIDE
     Dosage: UNK
  2. MUCOSTA [Concomitant]
     Active Substance: REBAMIPIDE
     Dosage: UNK
  3. MIRIDACIN [Concomitant]
     Dosage: UNK
  4. LOXOPROFEN [Concomitant]
     Active Substance: LOXOPROFEN
     Dosage: UNK
  5. CLOTIAZEPAM [Concomitant]
     Active Substance: CLOTIAZEPAM
     Dosage: UNK
  6. EFFEXOR [Suspect]
     Active Substance: VENLAFAXINE HYDROCHLORIDE
     Dosage: 37.5 MG, 1X/DAY
     Route: 048
     Dates: start: 20160712, end: 20160722
  7. CONTOMIN /00011902/ [Suspect]
     Active Substance: CHLORPROMAZINE HYDROCHLORIDE
     Dosage: UNK
     Route: 030
  8. LOXONIN [Concomitant]
     Active Substance: LOXOPROFEN SODIUM
     Dosage: UNK
  9. LENDORMIN [Concomitant]
     Active Substance: BROTIZOLAM
     Dosage: UNK
  10. ANYRUME [Concomitant]
     Active Substance: ACETAMINOPHEN
     Dosage: UNK
  11. YOUPIS [Concomitant]
     Dosage: UNK
  12. MUCODYNE [Concomitant]
     Active Substance: CARBOCYSTEINE
     Dosage: UNK
  13. CLARITHROMYCIN. [Concomitant]
     Active Substance: CLARITHROMYCIN
     Dosage: UNK
  14. TRANSAMIN [Concomitant]
     Active Substance: TRANEXAMIC ACID
     Dosage: UNK
  15. POLARAMINE [Concomitant]
     Active Substance: DEXCHLORPHENIRAMINE MALEATE
     Dosage: UNK

REACTIONS (5)
  - Loss of consciousness [Unknown]
  - Neuroleptic malignant syndrome [Unknown]
  - Road traffic accident [Unknown]
  - Seizure [Unknown]
  - Drug eruption [Unknown]

NARRATIVE: CASE EVENT DATE: 20160723
